FAERS Safety Report 7265873-6 (Version None)
Quarter: 2011Q1

REPORT INFORMATION
  Report Type: 
  Country: None (occurrence: None)
  Receive Date: 20110131
  Receipt Date: 20110118
  Transmission Date: 20110831
  Serious: Yes (Hospitalization, Other)
  Sender: FDA-Public Use
  Company Number: B0673537A

PATIENT
  Sex: Male

DRUGS (9)
  1. AMLODIPINE [Concomitant]
     Indication: HYPERTENSION
     Dosage: 5MG PER DAY
     Route: 048
     Dates: end: 20100906
  2. WARFARIN POTASSIUM [Concomitant]
     Route: 048
     Dates: start: 20070101
  3. OLMETEC [Concomitant]
     Dosage: 20MG PER DAY
     Route: 048
     Dates: end: 20100906
  4. LAMICTAL [Suspect]
     Indication: EPILEPSY
     Dosage: 25MG PER DAY
     Route: 048
     Dates: start: 20100816
  5. PHENOBAL [Concomitant]
     Dosage: 1IUAX PER DAY
     Dates: start: 20070101
  6. LIPITOR [Concomitant]
     Dosage: 10MG PER DAY
     Route: 048
     Dates: end: 20100906
  7. CETIRIZINE HYDROCHLORIDE [Concomitant]
     Dosage: 10MG PER DAY
     Route: 048
     Dates: start: 20100906
  8. DEPAKENE [Concomitant]
     Indication: EPILEPSY
     Route: 048
     Dates: end: 20100907
  9. FAMOTIDINE [Concomitant]
     Indication: GASTRITIS
     Dosage: 20MG PER DAY
     Route: 048
     Dates: start: 20100816, end: 20100906

REACTIONS (11)
  - RASH [None]
  - MUCOSAL EROSION [None]
  - BLISTER [None]
  - SKIN EROSION [None]
  - WHITE BLOOD CELL COUNT INCREASED [None]
  - TOXIC EPIDERMAL NECROLYSIS [None]
  - PYREXIA [None]
  - STEVENS-JOHNSON SYNDROME [None]
  - ALANINE AMINOTRANSFERASE INCREASED [None]
  - ASPARTATE AMINOTRANSFERASE INCREASED [None]
  - BLOOD ALKALINE PHOSPHATASE INCREASED [None]
